FAERS Safety Report 9655658 (Version 1)
Quarter: 2013Q4

REPORT INFORMATION
  Report Type: Spontaneous
  Country: US (occurrence: US)
  Receive Date: 20131030
  Receipt Date: 20131030
  Transmission Date: 20140711
  Serious: Yes (Hospitalization)
  Sender: FDA-Public Use
  Company Number: US-BIOGENIDEC-2013BI103474

PATIENT
  Sex: Female

DRUGS (1)
  1. TYSABRI [Suspect]
     Indication: CROHN^S DISEASE
     Route: 042
     Dates: start: 20130523, end: 20130815

REACTIONS (5)
  - Rectal haemorrhage [Unknown]
  - Pyrexia [Unknown]
  - Abdominal pain [Unknown]
  - Diarrhoea [Unknown]
  - Nausea [Unknown]
